FAERS Safety Report 5394932-8 (Version None)
Quarter: 2007Q3

REPORT INFORMATION
  Report Type: 
  Country: None (occurrence: None)
  Receive Date: 20070720
  Receipt Date: 20070716
  Transmission Date: 20080115
  Serious: Yes (Life-Threatening)
  Sender: FDA-Public Use
  Company Number: 200707AGG00673

PATIENT
  Age: 56 Year
  Sex: Male

DRUGS (2)
  1. AGGRASTAT [Suspect]
     Indication: ACUTE MYOCARDIAL INFARCTION
     Dosage: (7.5 MG TOTAL INTRAVENOUS BOLUS), (14.5 ML TOTAL INTRAVENOUS DRIP)
     Route: 040
     Dates: start: 20070508, end: 20070508
  2. AGGRASTAT [Suspect]
     Indication: ACUTE MYOCARDIAL INFARCTION
     Dosage: (7.5 MG TOTAL INTRAVENOUS BOLUS), (14.5 ML TOTAL INTRAVENOUS DRIP)
     Route: 040
     Dates: start: 20070508, end: 20070508

REACTIONS (3)
  - ACUTE MYOCARDIAL INFARCTION [None]
  - THROMBOSIS IN DEVICE [None]
  - VENTRICULAR FIBRILLATION [None]
